FAERS Safety Report 7478452-2 (Version None)
Quarter: 2011Q2

REPORT INFORMATION
  Report Type: 
  Country: None (occurrence: None)
  Receive Date: 20110513
  Receipt Date: 20091109
  Transmission Date: 20111010
  Serious: No
  Sender: FDA-Public Use
  Company Number: US-PFIZER INC-2009295796

PATIENT
  Sex: Male

DRUGS (2)
  1. AZULFIDINE [Suspect]
     Dosage: UNK
  2. AZULFIDINE [Suspect]
     Dosage: UNK

REACTIONS (1)
  - BLISTER [None]
